FAERS Safety Report 20169423 (Version 1)
Quarter: 2021Q4

REPORT INFORMATION
  Report Type: Spontaneous
  Country: HR (occurrence: HR)
  Receive Date: 20211210
  Receipt Date: 20211210
  Transmission Date: 20220303
  Serious: Yes (Other)
  Sender: FDA-Public Use
  Company Number: HR-ASTELLAS-2021US047250

PATIENT
  Age: 39 Year
  Sex: Female
  Weight: 55 kg

DRUGS (3)
  1. TACROLIMUS [Suspect]
     Active Substance: TACROLIMUS
     Indication: Immunosuppression
     Dosage: UNK UNK, UNKNOWN FREQ.
     Route: 065
  2. BASILIXIMAB [Concomitant]
     Active Substance: BASILIXIMAB
     Indication: Immunosuppression
     Dosage: UNK UNK, UNKNOWN FREQ.
     Route: 065
  3. MYCOPHENOLATE MOFETIL [Concomitant]
     Active Substance: MYCOPHENOLATE MOFETIL
     Indication: Immunosuppression
     Dosage: UNK UNK, UNKNOWN FREQ.
     Route: 065

REACTIONS (13)
  - Transplant rejection [Unknown]
  - Chronic allograft nephropathy [Unknown]
  - Pneumonia [Unknown]
  - Leukopenia [Unknown]
  - Thrombocytopenia [Unknown]
  - Cytomegalovirus infection [Unknown]
  - COVID-19 pneumonia [Unknown]
  - Proteinuria [Unknown]
  - Blood creatinine increased [Unknown]
  - Donor specific antibody present [Unknown]
  - Anaemia [Unknown]
  - BK virus infection [Unknown]
  - Human polyomavirus infection [Unknown]

NARRATIVE: CASE EVENT DATE: 20160701
